FAERS Safety Report 4480606-4 (Version None)
Quarter: 2004Q4

REPORT INFORMATION
  Report Type: 
  Country: None (occurrence: None)
  Receive Date: 20041019
  Receipt Date: 20041005
  Transmission Date: 20050328
  Serious: Yes (Life-Threatening)
  Sender: FDA-Public Use
  Company Number: 2004S1000218

PATIENT
  Age: 27 Year
  Sex: Female
  Weight: 50 kg

DRUGS (4)
  1. CUBICIN [Suspect]
     Indication: ENDOCARDITIS
     Dosage: 6 MG/KG;Q24H;IV
     Route: 042
     Dates: start: 20040917, end: 20041005
  2. PHENYTOIN [Concomitant]
  3. LINEZOLID [Concomitant]
  4. VANCOMYCIN [Concomitant]

REACTIONS (7)
  - CARDIO-RESPIRATORY ARREST [None]
  - CONVULSION [None]
  - DRUG HYPERSENSITIVITY [None]
  - DRUG LEVEL BELOW THERAPEUTIC [None]
  - ENDOCARDITIS [None]
  - NEUROPATHY PERIPHERAL [None]
  - PAIN IN EXTREMITY [None]
